FAERS Safety Report 5093405-X (Version None)
Quarter: 2006Q3

REPORT INFORMATION
  Report Type: 
  Country: None (occurrence: None)
  Receive Date: 20060828
  Receipt Date: 20060810
  Transmission Date: 20061208
  Serious: Yes (Other)
  Sender: FDA-Public Use
  Company Number: DSA_28595_2006

PATIENT
  Age: 17 Year
  Sex: Male

DRUGS (3)
  1. TAVOR /00273201/ [Suspect]
     Indication: DELUSION
     Dosage: 1 MG QID PO
     Route: 048
  2. THIORIDAZINE HCL [Suspect]
     Indication: SCHIZOID PERSONALITY DISORDER
     Dosage: 2 TAB Q DAY PO
     Route: 048
  3. MELLERIL /00034202/ [Suspect]
     Indication: SCHIZOID PERSONALITY DISORDER
     Dosage: 30 MG ONCE PO
     Route: 048

REACTIONS (2)
  - FEELING ABNORMAL [None]
  - HALLUCINATION, VISUAL [None]
